FAERS Safety Report 12622750 (Version 3)
Quarter: 2016Q4

REPORT INFORMATION
  Report Type: Report from Study
  Country: None (occurrence: ZA)
  Receive Date: 20160804
  Receipt Date: 20161111
  Transmission Date: 20170207
  Serious: Yes (Other)
  Sender: FDA-Public Use
  Company Number: ZA-ABBVIE-16P-143-1689825-00

PATIENT
  Age: 8 Year
  Sex: Male
  Weight: 21 kg

DRUGS (6)
  1. RITONAVIR. [Suspect]
     Active Substance: RITONAVIR
     Indication: HIV INFECTION
     Route: 048
     Dates: start: 20160408, end: 20160515
  2. RITONAVIR. [Suspect]
     Active Substance: RITONAVIR
     Route: 048
  3. RITONAVIR. [Suspect]
     Active Substance: RITONAVIR
     Route: 048
     Dates: start: 20160516, end: 20160724
  4. ATAZANAVIR [Concomitant]
     Active Substance: ATAZANAVIR
     Indication: HIV INFECTION
     Route: 048
     Dates: start: 20150602, end: 20160515
  5. ATAZANAVIR [Concomitant]
     Active Substance: ATAZANAVIR
     Route: 048
  6. ATAZANAVIR [Concomitant]
     Active Substance: ATAZANAVIR
     Route: 048
     Dates: start: 20160516, end: 20160724

REACTIONS (1)
  - Accidental overdose [Recovered/Resolved]

NARRATIVE: CASE EVENT DATE: 20160516
